FAERS Safety Report 4370948-5 (Version None)
Quarter: 2004Q2

REPORT INFORMATION
  Report Type: 
  Country: None (occurrence: None)
  Receive Date: 20040603
  Receipt Date: 20040603
  Transmission Date: 20050107
  Serious: Yes (Other)
  Sender: FDA-Public Use
  Company Number: None

PATIENT
  Sex: Female
  Weight: 86.637 kg

DRUGS (9)
  1. ZITHROMAX [Suspect]
     Indication: BRONCHITIS
     Dosage: 250 MG TWO DOSES PO 1ST DOSE
     Route: 048
     Dates: start: 20040528
  2. METOPROLOL TARTRATE [Concomitant]
  3. GLUCOSAMINE [Concomitant]
  4. LISINOPRIL [Concomitant]
  5. ASPIRIN [Concomitant]
  6. LIPITOR [Concomitant]
  7. SYNTHROID [Concomitant]
  8. HYDROCHLOROTHIAZIDE [Concomitant]
  9. MULTI-VITAMIN [Concomitant]

REACTIONS (1)
  - TINNITUS [None]
